FAERS Safety Report 5242888-0 (Version None)
Quarter: 2007Q1

REPORT INFORMATION
  Report Type: 
  Country: None (occurrence: None)
  Receive Date: 20070221
  Receipt Date: 20070207
  Transmission Date: 20070707
  Serious: Yes (Hospitalization, Other)
  Sender: FDA-Public Use
  Company Number: US-ELI_LILLY_AND_COMPANY-US200601002014

PATIENT
  Age: 41 Year
  Sex: Female
  Weight: 86.167 kg

DRUGS (26)
  1. SEROQUEL [Concomitant]
     Indication: BIPOLAR DISORDER
     Dosage: UNK, UNKNOWN
     Dates: start: 20050101
  2. SEROQUEL [Concomitant]
     Dates: start: 20040801, end: 20040901
  3. SEROQUEL [Concomitant]
     Dosage: 200 MG, EACH EVENING
     Dates: start: 20051121
  4. ABILIFY [Concomitant]
     Dosage: 5 MG, EACH MORNING
     Dates: start: 20040310, end: 20040414
  5. LEXAPRO [Concomitant]
     Dosage: 10 MG, DAILY (1/D)
     Dates: end: 20040712
  6. RITALIN [Concomitant]
     Dosage: 20 MG, 3/D
     Route: 048
     Dates: start: 20040501, end: 20040712
  7. RITALIN [Concomitant]
     Dosage: 20 MG, 4/D
     Dates: end: 20040108
  8. RITALIN [Concomitant]
     Dosage: 20 MG, 4/D
     Dates: start: 20040520, end: 20040630
  9. RITALIN [Concomitant]
     Dosage: 20 MG, 3/D
     Route: 048
     Dates: start: 20040630, end: 20040801
  10. TRAZODONE HYDROCHLORIDE [Concomitant]
     Dosage: 300 MG, EACH EVENING
     Route: 048
  11. TRAZODONE HYDROCHLORIDE [Concomitant]
     Dosage: 300-500 MG, EACH EVENING
     Route: 048
     Dates: start: 20040630, end: 20040801
  12. PAXIL CR [Concomitant]
     Dosage: 12.5 MG, EACH MORNING
     Route: 048
     Dates: start: 20040712, end: 20040716
  13. PAXIL CR [Concomitant]
     Dosage: 25 MG, EACH MORNING
     Route: 048
     Dates: start: 20040717
  14. EFFEXOR XR [Concomitant]
     Dosage: 75 MG, 2/D
     Route: 048
     Dates: end: 20040310
  15. EFFEXOR XR [Concomitant]
     Dosage: 75 MG, DAILY (1/D)
     Route: 048
     Dates: start: 20040311, end: 20040317
  16. EFFEXOR XR [Concomitant]
     Dosage: 37.5 MG, DAILY (1/D)
     Route: 048
     Dates: start: 20040318, end: 20040324
  17. ALPRAZOLAM [Concomitant]
     Dates: end: 20040108
  18. ALPRAZOLAM [Concomitant]
     Dates: start: 20040801
  19. STRATTERA /USA/ [Concomitant]
     Dosage: 80 MG, UNK
  20. GABITRIL [Concomitant]
     Dates: start: 20040801, end: 20040901
  21. VISTARIL [Concomitant]
     Dates: start: 20040801
  22. BUSPAR [Concomitant]
     Dates: start: 20040801, end: 20040901
  23. BUSPAR [Concomitant]
     Dosage: 5 MG, 2/D
     Dates: start: 20051121
  24. DEPAKOTE ER [Concomitant]
     Indication: BIPOLAR DISORDER
     Dosage: 1500 MG, EACH EVENING
     Dates: start: 20051121
  25. PAROXETINE HCL [Concomitant]
     Dosage: 20 MG, EACH EVENING
     Route: 048
     Dates: start: 20051121
  26. ZYPREXA [Suspect]
     Indication: DEPRESSION
     Dosage: UNK, 3/D
     Route: 048
     Dates: start: 20000101, end: 20050101

REACTIONS (7)
  - BLOOD GLUCOSE DECREASED [None]
  - DIABETES MELLITUS NON-INSULIN-DEPENDENT [None]
  - HEADACHE [None]
  - LOSS OF CONSCIOUSNESS [None]
  - SYNCOPE [None]
  - WEIGHT DECREASED [None]
  - WEIGHT INCREASED [None]
